FAERS Safety Report 8847594 (Version 1)
Quarter: 2012Q4

REPORT INFORMATION
  Report Type: 
  Country: ES (occurrence: ES)
  Receive Date: 20121018
  Receipt Date: 20121018
  Transmission Date: 20130627
  Serious: Yes (Other)
  Sender: FDA-Public Use
  Company Number: ES-TEVA-363218ISR

PATIENT
  Age: 84 Year
  Sex: Male

DRUGS (2)
  1. CLARITHROMYCIN [Suspect]
     Dosage: 1000 Milligram Daily;
     Route: 048
     Dates: start: 201209, end: 201210
  2. PECTOX [Concomitant]
     Route: 048

REACTIONS (2)
  - Deafness [Not Recovered/Not Resolved]
  - Gastrointestinal disorder [Not Recovered/Not Resolved]
